FAERS Safety Report 6286564-4 (Version None)
Quarter: 2009Q3

REPORT INFORMATION
  Report Type: 
  Country: None (occurrence: None)
  Receive Date: 20090728
  Receipt Date: 20090331
  Transmission Date: 20100115
  Serious: Yes (Other)
  Sender: FDA-Public Use
  Company Number: PHHY2009BR09520

PATIENT

DRUGS (1)
  1. CERTICAN [Suspect]
     Indication: RENAL TRANSPLANT
     Dosage: UNK

REACTIONS (2)
  - HALLUCINATION [None]
  - MENTAL DISORDER [None]
